FAERS Safety Report 4289888-5 (Version None)
Quarter: 2004Q1

REPORT INFORMATION
  Report Type: 
  Country: None (occurrence: None)
  Receive Date: 20040206
  Receipt Date: 20040129
  Transmission Date: 20041129
  Serious: Yes (Other)
  Sender: FDA-Public Use
  Company Number: 2004194630JP

PATIENT
  Age: 48 Year
  Sex: Male
  Weight: 55 kg

DRUGS (2)
  1. DOXORUBICIN HCL [Suspect]
     Indication: BLADDER CANCER
     Dosage: 45 MG, QD, INTRA-ARTERIAL
     Route: 013
     Dates: start: 20011112, end: 20011112
  2. AQUPLA (NEDAPLATIN) [Suspect]
     Indication: BLADDER CANCER
     Dosage: 150 MG, QD, INTRA-ARTERIAL
     Route: 013
     Dates: start: 20011112, end: 20011112

REACTIONS (5)
  - DERMATITIS EXFOLIATIVE [None]
  - DRUG TOXICITY [None]
  - PAIN [None]
  - RASH [None]
  - SKIN ULCER [None]
